FAERS Safety Report 15023317 (Version 1)
Quarter: 2018Q2

REPORT INFORMATION
  Report Type: Spontaneous
  Country: DE (occurrence: DE)
  Receive Date: 20180618
  Receipt Date: 20180618
  Transmission Date: 20180711
  Serious: Yes (Hospitalization)
  Sender: FDA-Public Use
  Company Number: DE-TEVA-2018-DE-908417

PATIENT
  Age: 82 Year
  Sex: Female

DRUGS (14)
  1. PREDNISOLONE. [Suspect]
     Active Substance: PREDNISOLONE
     Dosage: 2.5 MILLIGRAM DAILY; 2.5 MG, 0.5-0-0-0
  2. AMLODIPIN [Concomitant]
     Active Substance: AMLODIPINE BESYLATE
     Dosage: 10 MILLIGRAM DAILY; 10 MG, 0-0-1-0
  3. TRAMADOL. [Concomitant]
     Active Substance: TRAMADOL
     Dosage: 200 MG, 0.5-0-0-0
  4. IBUPROFEN. [Suspect]
     Active Substance: IBUPROFEN
     Dosage: 1200 MILLIGRAM DAILY; 600 MG, 1-0-1-0
  5. SIMVASTATIN. [Concomitant]
     Active Substance: SIMVASTATIN
     Dosage: 40 MILLIGRAM DAILY; 40 MG, 0-0-0-1
  6. CLOPIDOGREL [Suspect]
     Active Substance: CLOPIDOGREL BISULFATE
     Dosage: NK MG, 0-1-0-0
  7. ELIQUIS [Suspect]
     Active Substance: APIXABAN
     Dosage: 5 MILLIGRAM DAILY; 2.5 MG, 1-0-1-0
  8. DOXEPIN [Concomitant]
     Active Substance: DOXEPIN
     Dosage: 25 MILLIGRAM DAILY;
  9. TORASEMID [Concomitant]
     Active Substance: TORSEMIDE
  10. METAMIZOL [Concomitant]
     Active Substance: METAMIZOLE SODIUM
     Dosage: NK MG, BEDARF
  11. EBRANTIL [Concomitant]
     Active Substance: URAPIDIL
     Dosage: 60 MILLIGRAM DAILY; 60 MG, 0-0-1-0
  12. PANTOPRAZOL [Concomitant]
     Active Substance: PANTOPRAZOLE SODIUM
     Dosage: 40 MILLIGRAM DAILY;
  13. DEKRISTOL [Concomitant]
     Active Substance: CHOLECALCIFEROL
     Dosage: NK IE, ALLE 14 TAGE 1
  14. CANDESARTAN. [Concomitant]
     Active Substance: CANDESARTAN
     Dosage: 32 MILLIGRAM DAILY;

REACTIONS (2)
  - Haematochezia [Unknown]
  - Abdominal pain upper [Unknown]
